FAERS Safety Report 4384658-1 (Version None)
Quarter: 2004Q2

REPORT INFORMATION
  Report Type: 
  Country: None (occurrence: None)
  Receive Date: 20040621
  Receipt Date: 20040603
  Transmission Date: 20050107
  Serious: Yes (Hospitalization)
  Sender: FDA-Public Use
  Company Number: 060001L04TUR

PATIENT
  Age: 25 Year
  Sex: Female

DRUGS (1)
  1. CLOMIPHENE CITRATE [Suspect]
     Indication: INFERTILITY FEMALE
     Dosage: 100 MG, 1 IN 1 DAYS

REACTIONS (7)
  - BREECH PRESENTATION [None]
  - CAESAREAN SECTION [None]
  - DRUG EXPOSURE DURING PREGNANCY [None]
  - PERITONEAL HAEMORRHAGE [None]
  - PREMATURE BABY [None]
  - RUPTURED ECTOPIC PREGNANCY [None]
  - TWIN PREGNANCY [None]
